APPROVED DRUG PRODUCT: UBRELVY
Active Ingredient: UBROGEPANT
Strength: 50MG
Dosage Form/Route: TABLET;ORAL
Application: N211765 | Product #001
Applicant: ABBVIE INC
Approved: Dec 23, 2019 | RLD: Yes | RS: No | Type: RX

PATENTS:
Patent 8754096 | Expires: Jul 19, 2032
Patent 9499545 | Expires: Nov 10, 2031
Patent 9833448 | Expires: Nov 10, 2031
Patent 11717515 | Expires: Dec 22, 2041
Patent 12329750 | Expires: Dec 22, 2041
Patent 12194030 | Expires: Dec 22, 2041
Patent 12194030 | Expires: Dec 22, 2041
Patent 11857542 | Expires: Dec 22, 2041
Patent 12220408 | Expires: Jan 30, 2035
Patent 12458632 | Expires: Jan 30, 2035
Patent 8912210 | Expires: Dec 23, 2033
Patent 11925709 | Expires: Jan 30, 2035
Patent 12168004 | Expires: Jan 30, 2035
Patent 10117836 | Expires: Jan 30, 2035
Patent 12310953 | Expires: Jan 30, 2035
Patent 12458633 | Expires: Jan 30, 2035